FAERS Safety Report 7315817-3 (Version None)
Quarter: 2011Q1

REPORT INFORMATION
  Report Type: 
  Country: None (occurrence: None)
  Receive Date: 20110217
  Receipt Date: 20110217
  Transmission Date: 20110831
  Serious: Yes (Hospitalization)
  Sender: FDA-Public Use
  Company Number: None

PATIENT
  Age: 67 Year
  Sex: Male
  Weight: 85.55 kg

DRUGS (2)
  1. METHYLPREDNISOLONE [Suspect]
     Indication: PAIN
     Dates: start: 20101206, end: 20101222
  2. NAPROXEN [Suspect]
     Indication: PAIN
     Dosage: 500 MG BID PO
     Route: 048
     Dates: start: 20101206, end: 20101222

REACTIONS (5)
  - DYSPHAGIA [None]
  - ANAPHYLACTIC REACTION [None]
  - CHOKING [None]
  - PHARYNGEAL OEDEMA [None]
  - PRURITUS [None]
